FAERS Safety Report 18828602 (Version 1)
Quarter: 2021Q1

REPORT INFORMATION
  Report Type: Spontaneous
  Country: US (occurrence: US)
  Receive Date: 20210201
  Receipt Date: 20210201
  Transmission Date: 20210419
  Serious: No
  Sender: FDA-Public Use
  Company Number: US-ABBVIE-20K-163-3537657-00

PATIENT
  Age: 39 Year
  Sex: Female

DRUGS (2)
  1. HUMIRA [Suspect]
     Active Substance: ADALIMUMAB
     Indication: PRODUCT USED FOR UNKNOWN INDICATION
     Route: 058
  2. COSENTYX [Concomitant]
     Active Substance: SECUKINUMAB
     Indication: PRODUCT USED FOR UNKNOWN INDICATION

REACTIONS (8)
  - Intervertebral disc protrusion [Unknown]
  - Arthropathy [Unknown]
  - Immune system disorder [Unknown]
  - Muscular weakness [Unknown]
  - Therapeutic product effect decreased [Unknown]
  - Dyskinesia [Unknown]
  - Joint swelling [Unknown]
  - Tendon disorder [Unknown]

NARRATIVE: CASE EVENT DATE: 20200824
